FAERS Safety Report 10213696 (Version 2)
Quarter: 2014Q2

REPORT INFORMATION
  Report Type: Spontaneous
  Country: SK (occurrence: SK)
  Receive Date: 20140603
  Receipt Date: 20140603
  Transmission Date: 20141212
  Serious: Yes (Death, Hospitalization)
  Sender: FDA-Public Use
  Company Number: SK-SA-2014SA058075

PATIENT
  Age: 70 Year
  Sex: Male
  Weight: 90 kg

DRUGS (2)
  1. JEVTANA [Suspect]
     Indication: PROSTATE CANCER
     Route: 042
     Dates: start: 20140424, end: 20140424
  2. NEULASTA [Concomitant]
     Indication: PROPHYLAXIS
     Route: 058
     Dates: start: 20140425, end: 20140425

REACTIONS (5)
  - Gastrointestinal haemorrhage [Fatal]
  - C-reactive protein increased [Fatal]
  - Hepatic enzyme increased [Fatal]
  - Neutropenia [Not Recovered/Not Resolved]
  - Diarrhoea [Not Recovered/Not Resolved]
